FAERS Safety Report 24692762 (Version 1)
Quarter: 2024Q4

REPORT INFORMATION
  Report Type: Spontaneous
  Country: US (occurrence: None)
  Receive Date: 20241203
  Receipt Date: 20241203
  Transmission Date: 20250114
  Serious: Yes (Hospitalization)
  Sender: Public
  Company Number: None

PATIENT
  Age: 79 Year
  Sex: Male
  Weight: 81 kg

DRUGS (1)
  1. LIRAGLUTIDE [Suspect]
     Active Substance: LIRAGLUTIDE
     Indication: Diabetes mellitus
     Dosage: 1.20 MG DAILY SUBCUTANEOUS
     Route: 058

REACTIONS (2)
  - Gastrooesophageal sphincter insufficiency [None]
  - Therapy cessation [None]

NARRATIVE: CASE EVENT DATE: 20241103
